FAERS Safety Report 15208016 (Version 2)
Quarter: 2018Q3

REPORT INFORMATION
  Report Type: Report from Study
  Country: DE (occurrence: DE)
  Receive Date: 20180727
  Receipt Date: 20180829
  Transmission Date: 20181010
  Serious: Yes (Hospitalization, Other)
  Sender: FDA-Public Use
  Company Number: DE-TEVA-2018-DE-930895

PATIENT
  Age: 64 Year
  Sex: Female

DRUGS (10)
  1. METHOTREXATE. [Suspect]
     Active Substance: METHOTREXATE
     Indication: RHEUMATOID ARTHRITIS
     Route: 065
  2. PREDNISOLON [Concomitant]
     Active Substance: PREDNISOLONE
     Route: 065
  3. L?THYROXIN [Concomitant]
     Active Substance: LEVOTHYROXINE SODIUM
     Route: 065
  4. DMARD (RO 31?3948) [Concomitant]
     Active Substance: ROMAZARIT
     Route: 065
  5. SIMVASTATIN. [Concomitant]
     Active Substance: SIMVASTATIN
     Route: 065
  6. GENERIC COMPONENT(S) NOT KNOWN [Concomitant]
     Active Substance: UNSPECIFIED INGREDIENT
     Dosage: DRUG REPORTED: FOSSAR
     Route: 065
  7. METOHEXAL [Concomitant]
     Active Substance: METOPROLOL SUCCINATE
     Route: 065
  8. CALCIVIT D [Concomitant]
     Dosage: DRUG REPORTED: CA, VIT D,
     Route: 065
  9. MABTHERA [Suspect]
     Active Substance: RITUXIMAB
     Indication: RHEUMATOID ARTHRITIS
     Route: 042
  10. MABTHERA [Suspect]
     Active Substance: RITUXIMAB
     Route: 042
     Dates: start: 20070802, end: 20070816

REACTIONS (2)
  - Malignant melanoma [Recovered/Resolved]
  - Melanoma recurrent [Unknown]

NARRATIVE: CASE EVENT DATE: 200710
